FAERS Safety Report 6999471-6 (Version None)
Quarter: 2010Q3

REPORT INFORMATION
  Report Type: 
  Country: None (occurrence: None)
  Receive Date: 20100920
  Receipt Date: 20070905
  Transmission Date: 20110219
  Serious: Yes (Other)
  Sender: FDA-Public Use
  Company Number: US-ASTRAZENECA-2006UW08450

PATIENT
  Age: 41 Year
  Sex: Female
  Weight: 78 kg

DRUGS (5)
  1. SEROQUEL [Suspect]
     Indication: SLEEP DISORDER
     Dosage: 100 - 800 MG
     Route: 048
     Dates: start: 20041019
  2. ZYPREXA [Concomitant]
  3. ACTOS [Concomitant]
     Dosage: 30 - 45 MG
     Route: 048
     Dates: start: 20040408
  4. DEPAKOTE [Concomitant]
     Dates: start: 20040408
  5. RESTORIL [Concomitant]
     Indication: INSOMNIA
     Dates: start: 20050413

REACTIONS (3)
  - DIABETES MELLITUS [None]
  - PANCREATITIS [None]
  - TYPE 2 DIABETES MELLITUS [None]
